FAERS Safety Report 23919279 (Version 1)
Quarter: 2024Q2

REPORT INFORMATION
  Report Type: Spontaneous
  Country: US (occurrence: None)
  Receive Date: 20240529
  Receipt Date: 20240529
  Transmission Date: 20240716
  Serious: No
  Sender: FDA-Public Use
  Company Number: None

PATIENT
  Age: 81 Year
  Sex: Male

DRUGS (1)
  1. CALQUENCE [Suspect]
     Active Substance: ACALABRUTINIB
     Indication: Chronic lymphocytic leukaemia
     Dosage: OTHER QUANTITY : ONE TABLET;?FREQUENCY : TWICE A DAY;?
     Route: 048
     Dates: start: 20230302

REACTIONS (2)
  - Diarrhoea [None]
  - Exposure to radiation [None]

NARRATIVE: CASE EVENT DATE: 20240522
